FAERS Safety Report 4503794-X (Version None)
Quarter: 2004Q4

REPORT INFORMATION
  Report Type: 
  Country: None (occurrence: None)
  Receive Date: 20041115
  Receipt Date: 20041102
  Transmission Date: 20050328
  Serious: Yes (Death)
  Sender: FDA-Public Use
  Company Number: 2004087117

PATIENT
  Sex: Female

DRUGS (2)
  1. LISTERINE (EUCALYPTOL, MENTHOL, METHYL SALICYLATE, THYMOL) [Suspect]
     Indication: POISONING
     Dosage: UNSPECIFIED AMOUNT, ORAL
     Route: 048
  2. ETHANOL [Suspect]
     Indication: POISONING
     Dosage: UNSPECIFIED, ORAL
     Route: 048

REACTIONS (6)
  - AGGRESSION [None]
  - AMNESIA [None]
  - ANOREXIA [None]
  - DEPENDENCE [None]
  - EYE DISORDER [None]
  - MENTAL IMPAIRMENT [None]
